FAERS Safety Report 21086297 (Version 1)
Quarter: 2022Q3

REPORT INFORMATION
  Report Type: Report from Study
  Country: CA (occurrence: CA)
  Receive Date: 20220715
  Receipt Date: 20220715
  Transmission Date: 20221026
  Serious: Yes (Other)
  Sender: FDA-Public Use
  Company Number: CA-JNJFOC-20220722152

PATIENT
  Age: 4 Year
  Sex: Female
  Weight: 18.614 kg

DRUGS (2)
  1. REMICADE [Suspect]
     Active Substance: INFLIXIMAB
     Indication: Colitis ulcerative
     Route: 041
     Dates: start: 20201125
  2. REMICADE [Suspect]
     Active Substance: INFLIXIMAB
     Dosage: THE PATIENT ADMINISTERED 18TH INFUSION ON 11-JUL-2022 INFUSION AT DOSE OF 250 MG. PARTIAL MAYO COMPL
     Route: 041

REACTIONS (1)
  - Haematochezia [Unknown]

NARRATIVE: CASE EVENT DATE: 20220710
